FAERS Safety Report 8297550-7 (Version None)
Quarter: 2012Q2

REPORT INFORMATION
  Report Type: 
  Country: None (occurrence: None)
  Receive Date: 20120419
  Receipt Date: 20120411
  Transmission Date: 20120825
  Serious: Yes (Hospitalization)
  Sender: FDA-Public Use
  Company Number: PHHY2012FR031552

PATIENT
  Sex: Female

DRUGS (5)
  1. LIORESAL [Concomitant]
     Dosage: 5 MG, QD
  2. EXTAVIA [Suspect]
     Indication: SECONDARY PROGRESSIVE MULTIPLE SCLEROSIS
     Dosage: UNK UKN, UNK
     Dates: end: 20110104
  3. XANAX [Concomitant]
     Dosage: 0.25 MG, QD
  4. FLUTICASONE PROPIONATE/SALMETEROL [Concomitant]
     Dosage: 1 DF, BID
  5. DEBRIDAT [Concomitant]
     Dosage: 1 DF, QD

REACTIONS (7)
  - TRANSAMINASES INCREASED [None]
  - COOMBS POSITIVE HAEMOLYTIC ANAEMIA [None]
  - ANAEMIA MACROCYTIC [None]
  - ASTHENIA [None]
  - URINE COLOUR ABNORMAL [None]
  - PALLOR [None]
  - MUCOSAL DISCOLOURATION [None]
